FAERS Safety Report 5869090-3 (Version None)
Quarter: 2008Q3

REPORT INFORMATION
  Report Type: 
  Country: None (occurrence: None)
  Receive Date: 20080903
  Receipt Date: 20080827
  Transmission Date: 20090109
  Serious: Yes (Death)
  Sender: FDA-Public Use
  Company Number: FR-AVENTIS-200813154FR

PATIENT
  Age: 86 Year
  Sex: Female

DRUGS (7)
  1. LOVENOX [Suspect]
     Indication: CEREBROVASCULAR ACCIDENT
     Route: 058
     Dates: start: 20080303, end: 20080306
  2. LOVENOX [Suspect]
     Route: 048
     Dates: start: 20080307, end: 20080318
  3. KARDEGIC                           /00002703/ [Concomitant]
  4. TAHOR [Concomitant]
     Route: 048
  5. FUNGIZONE [Concomitant]
  6. CEFTAZIDIME [Concomitant]
  7. CARDENSIEL [Concomitant]

REACTIONS (1)
  - COAGULATION TIME PROLONGED [None]
